FAERS Safety Report 7511901-X (Version None)
Quarter: 2011Q2

REPORT INFORMATION
  Report Type: 
  Country: None (occurrence: None)
  Receive Date: 20110531
  Receipt Date: 20110526
  Transmission Date: 20111010
  Serious: Yes (Other)
  Sender: FDA-Public Use
  Company Number: US-PFIZER INC-2011114804

PATIENT
  Sex: Female
  Weight: 72.562 kg

DRUGS (3)
  1. NORVASC [Concomitant]
     Indication: HYPERTENSION
     Dosage: 1 MG, DAILY
  2. CHANTIX [Suspect]
     Indication: SMOKING CESSATION THERAPY
     Dosage: 0.5 MG, 1X/DAY
     Route: 048
     Dates: start: 20090101
  3. CHANTIX [Suspect]
     Dosage: 1 MG, 2X/DAY
     Route: 048

REACTIONS (4)
  - TOOTH LOSS [None]
  - GINGIVAL SWELLING [None]
  - MOOD ALTERED [None]
  - DEFORMITY [None]
